FAERS Safety Report 4778853-7 (Version None)
Quarter: 2005Q3

REPORT INFORMATION
  Report Type: 
  Country: None (occurrence: None)
  Receive Date: 20050922
  Receipt Date: 20050906
  Transmission Date: 20060218
  Serious: Yes (Other)
  Sender: FDA-Public Use
  Company Number: DSA_27090_2005

PATIENT
  Sex: Male

DRUGS (4)
  1. TEMAZEPAM [Suspect]
     Dosage: DF, PO
     Route: 048
  2. LORAMET [Suspect]
     Dosage: 2 MG Q DAY, PO
     Route: 048
  3. SEROXAT [Concomitant]
  4. LEXOTAN [Concomitant]

REACTIONS (1)
  - GAMMA-GLUTAMYLTRANSFERASE INCREASED [None]
